FAERS Safety Report 4969114-1 (Version None)
Quarter: 2006Q2

REPORT INFORMATION
  Report Type: 
  Country: None (occurrence: None)
  Receive Date: 20060411
  Receipt Date: 20050303
  Transmission Date: 20061013
  Serious: Yes (Other)
  Sender: FDA-Public Use
  Company Number: US-BRISTOL-MYERS SQUIBB COMPANY-12891362

PATIENT
  Age: 45 Year
  Sex: Female
  Weight: 69 kg

DRUGS (4)
  1. CARBOPLATIN [Suspect]
     Indication: CERVIX CARCINOMA
     Dosage: LOT 4G78731, EXP. 31-JAN-2006
     Route: 042
     Dates: start: 20050223, end: 20050223
  2. DECADRON [Concomitant]
     Indication: PREMEDICATION
     Dates: start: 20050223, end: 20050223
  3. ZOFRAN [Concomitant]
     Indication: PREMEDICATION
     Dates: start: 20050223, end: 20050223
  4. GEMZAR [Concomitant]

REACTIONS (1)
  - HYPERSENSITIVITY [None]
